FAERS Safety Report 7640828-8 (Version None)
Quarter: 2011Q3

REPORT INFORMATION
  Report Type: 
  Country: None (occurrence: None)
  Receive Date: 20110728
  Receipt Date: 20110617
  Transmission Date: 20111222
  Serious: No
  Sender: FDA-Public Use
  Company Number: US-MUTUAL PHARMACEUTICAL COMPANY, INC.-CLCY20110077

PATIENT
  Sex: Male
  Weight: 25.878 kg

DRUGS (4)
  1. COLCRYS [Suspect]
     Indication: FAMILIAL MEDITERRANEAN FEVER
     Route: 048
     Dates: start: 20110127, end: 20110201
  2. COLCRYS [Suspect]
     Route: 048
     Dates: start: 20110201, end: 20110201
  3. DONNATAL 16.2 MG [Concomitant]
     Indication: ADVERSE DRUG REACTION
     Route: 048
     Dates: start: 20110127, end: 20110216
  4. COLCRYS [Suspect]
     Route: 048
     Dates: start: 20110201

REACTIONS (3)
  - URINARY INCONTINENCE [None]
  - BLADDER SPASM [None]
  - MICTURITION URGENCY [None]
